FAERS Safety Report 8492903-6 (Version None)
Quarter: 2012Q3

REPORT INFORMATION
  Report Type: 
  Country: None (occurrence: None)
  Receive Date: 20120706
  Receipt Date: 20120629
  Transmission Date: 20120928
  Serious: Yes (Hospitalization)
  Sender: FDA-Public Use
  Company Number: US-GLAXOSMITHKLINE-A0877376A

PATIENT
  Age: 64 Year
  Sex: Female
  Weight: 104.5 kg

DRUGS (6)
  1. AVANDAMET [Suspect]
     Indication: DIABETES MELLITUS
     Dosage: 1TAB PER DAY
     Route: 048
  2. LIPITOR [Concomitant]
  3. LISINOPRIL [Concomitant]
  4. CARDIZEM [Concomitant]
  5. AVANDIA [Suspect]
     Indication: DIABETES MELLITUS
     Route: 048
     Dates: start: 20021206, end: 20040914
  6. AMARYL [Concomitant]

REACTIONS (4)
  - ATRIAL FIBRILLATION [None]
  - SICK SINUS SYNDROME [None]
  - HEART INJURY [None]
  - ATRIAL FLUTTER [None]
